FAERS Safety Report 11160468 (Version 1)
Quarter: 2015Q2

REPORT INFORMATION
  Report Type: Spontaneous
  Country: US (occurrence: US)
  Receive Date: 20150604
  Receipt Date: 20150604
  Transmission Date: 20150821
  Serious: No
  Sender: FDA-Public Use
  Company Number: US-SA-2014SA059541

PATIENT
  Age: 63 Year
  Sex: Female

DRUGS (6)
  1. METFORMIN [Concomitant]
     Active Substance: METFORMIN HYDROCHLORIDE
     Route: 065
  2. PENICILLIN NOS [Concomitant]
     Active Substance: PENICILLIN
     Route: 065
  3. LANTUS SOLOSTAR [Suspect]
     Active Substance: INSULIN GLARGINE
     Indication: DIABETES MELLITUS
     Dosage: DOSE- 60 U AM/ 56 U PM
     Route: 065
  4. AVANDIA [Concomitant]
     Active Substance: ROSIGLITAZONE MALEATE
     Route: 065
  5. GABAPENTIN. [Concomitant]
     Active Substance: GABAPENTIN
     Route: 065
  6. SOLOSTAR [Concomitant]
     Active Substance: DEVICE

REACTIONS (1)
  - Limb discomfort [Unknown]
